FAERS Safety Report 5112761-7 (Version None)
Quarter: 2006Q3

REPORT INFORMATION
  Report Type: 
  Country: None (occurrence: None)
  Receive Date: 20060920
  Receipt Date: 20060920
  Transmission Date: 20061208
  Serious: No
  Sender: FDA-Public Use
  Company Number: None

PATIENT
  Age: 55 Year
  Sex: Female

DRUGS (1)
  1. HALDOL [Suspect]
     Indication: PSYCHOTIC DISORDER
     Dosage: 5 MG X 2 FEW HOURS APART IV
     Route: 042
     Dates: start: 20060805

REACTIONS (1)
  - NEUROLEPTIC MALIGNANT SYNDROME [None]
